FAERS Safety Report 5217469-5 (Version None)
Quarter: 2007Q1

REPORT INFORMATION
  Report Type: 
  Country: None (occurrence: None)
  Receive Date: 20070119
  Receipt Date: 20070111
  Transmission Date: 20070707
  Serious: Yes (Other)
  Sender: FDA-Public Use
  Company Number: CAP07000015

PATIENT
  Age: 74 Year
  Sex: Female

DRUGS (4)
  1. DIDROCAL (ETIDRONATE DISODIUM/CALCIUM CARBONATE CYCLICAL) TABLET, 400/ [Suspect]
     Indication: OSTEOPOROSIS
     Dosage: 1 TABLET ONCE DAILY, ORAL
     Route: 048
     Dates: start: 20060531, end: 20060101
  2. ACTONEL [Suspect]
     Indication: OSTEOPOROSIS
     Dosage: 35 MG ONCE WEEKLY, ORAL
     Route: 048
     Dates: start: 20040101, end: 20050201
  3. ACTONEL [Suspect]
     Indication: OSTEOPOROSIS
     Dosage: 35 MG ONCE WEEKLY, ORAL
     Route: 048
     Dates: start: 20070110
  4. TRAVATAN [Concomitant]

REACTIONS (1)
  - LEUKAEMIA [None]
